FAERS Safety Report 6392886-9 (Version None)
Quarter: 2009Q4

REPORT INFORMATION
  Report Type: 
  Country: None (occurrence: None)
  Receive Date: 20091007
  Receipt Date: 20090910
  Transmission Date: 20100525
  Serious: No
  Sender: FDA-Public Use
  Company Number: US-ALLERGAN-0912639US

PATIENT
  Age: 41 Year
  Sex: Female

DRUGS (4)
  1. LATISSE [Suspect]
     Indication: HYPOTRICHOSIS
     Dosage: 1 GTT, QHS
     Route: 061
  2. BIRTH CONTROL PILLS [Concomitant]
  3. MASCARA [Concomitant]
     Dosage: UNK
  4. EYELINER [Concomitant]
     Dosage: UNK

REACTIONS (7)
  - BURNING SENSATION [None]
  - EYE IRRITATION [None]
  - EYE PRURITUS [None]
  - EYELID OEDEMA [None]
  - EYELIDS PRURITUS [None]
  - OCULAR HYPERAEMIA [None]
  - VISUAL IMPAIRMENT [None]
